FAERS Safety Report 9794153 (Version 2)
Quarter: 2014Q1

REPORT INFORMATION
  Report Type: Spontaneous
  Country: US (occurrence: US)
  Receive Date: 20140102
  Receipt Date: 20140203
  Transmission Date: 20141002
  Serious: Yes (Hospitalization)
  Sender: FDA-Public Use
  Company Number: US-AMGEN-USASP2013089427

PATIENT
  Age: 43 Year
  Sex: Female
  Weight: 172.34 kg

DRUGS (1)
  1. ENBREL [Suspect]
     Indication: RHEUMATOID ARTHRITIS
     Dosage: 50 MG, WEEKLY
     Route: 065
     Dates: start: 20120510

REACTIONS (3)
  - Cellulitis [Recovered/Resolved]
  - Scratch [Recovered/Resolved]
  - Obesity [Unknown]
